FAERS Safety Report 5394045-5 (Version None)
Quarter: 2007Q3

REPORT INFORMATION
  Report Type: 
  Country: None (occurrence: None)
  Receive Date: 20070723
  Receipt Date: 20070206
  Transmission Date: 20080115
  Serious: No
  Sender: FDA-Public Use
  Company Number: A0638557A

PATIENT
  Age: 57 Year
  Sex: Female

DRUGS (2)
  1. AVANDIA [Suspect]
     Dosage: 2MG PER DAY
     Route: 048
     Dates: start: 20070101
  2. CYCLOBENZAPRINE HCL [Concomitant]

REACTIONS (3)
  - HYPERTONIA [None]
  - MALABSORPTION [None]
  - THERAPEUTIC RESPONSE UNEXPECTED [None]
